FAERS Safety Report 15867037 (Version 1)
Quarter: 2019Q1

REPORT INFORMATION
  Report Type: Spontaneous
  Country: JP (occurrence: JP)
  Receive Date: 20190125
  Receipt Date: 20190125
  Transmission Date: 20190417
  Serious: Yes (Hospitalization, Other)
  Sender: FDA-Public Use
  Company Number: JP-CPL-000862

PATIENT
  Age: 86 Year
  Sex: Male

DRUGS (10)
  1. RIVASTIGMINE/RIVASTIGMINE TARTRATE [Suspect]
     Active Substance: RIVASTIGMINE
     Indication: DEMENTIA ALZHEIMER^S TYPE
     Dosage: REDUCED THE DOSE GRADUALLY TO 4.5 MG/DAY
  2. QUETIAPINE. [Concomitant]
     Active Substance: QUETIAPINE
  3. CLOPIDOGREL [Concomitant]
     Active Substance: CLOPIDOGREL BISULFATE
  4. ESOMEPRAZOLE. [Concomitant]
     Active Substance: ESOMEPRAZOLE MAGNESIUM
  5. ISOSORBIDE. [Concomitant]
     Active Substance: ISOSORBIDE
  6. SUVOREXANT. [Concomitant]
     Active Substance: SUVOREXANT
  7. ATENOLOL/ATENOLOL HYDROCHLORIDE [Concomitant]
  8. MIRABEGRON [Concomitant]
     Active Substance: MIRABEGRON
  9. MEMANTINE. [Concomitant]
     Active Substance: MEMANTINE
     Indication: DEMENTIA ALZHEIMER^S TYPE
  10. TULOBUTEROL/TULOBUTEROL HYDROCHLORIDE [Concomitant]

REACTIONS (4)
  - Oesophageal dilatation [Recovered/Resolved]
  - Weight decreased [None]
  - Decreased appetite [None]
  - Nausea [None]
